FAERS Safety Report 6586620-7 (Version None)
Quarter: 2010Q1

REPORT INFORMATION
  Report Type: 
  Country: None (occurrence: None)
  Receive Date: 20100216
  Receipt Date: 20100216
  Transmission Date: 20100710
  Serious: Yes (Other)
  Sender: FDA-Public Use
  Company Number: None

PATIENT
  Sex: Female
  Weight: 97.5234 kg

DRUGS (6)
  1. FEXOFENADINE [Suspect]
     Indication: MULTIPLE ALLERGIES
     Dosage: 180MG DAILY PO
     Route: 048
     Dates: start: 20100130, end: 20100211
  2. BENADRYL [Concomitant]
  3. WELLBUTRIN XL [Concomitant]
  4. ALBUTEROL SULATE [Concomitant]
  5. FLOVENT [Concomitant]
  6. MAG-OX [Concomitant]

REACTIONS (7)
  - ASTHMA [None]
  - CONDITION AGGRAVATED [None]
  - DRUG INEFFECTIVE [None]
  - HEADACHE [None]
  - HOUSE DUST ALLERGY [None]
  - MULTIPLE ALLERGIES [None]
  - PRODUCT SUBSTITUTION ISSUE [None]
